FAERS Safety Report 22091518 (Version 2)
Quarter: 2023Q2

REPORT INFORMATION
  Report Type: Spontaneous
  Country: NL (occurrence: NL)
  Receive Date: 20230314
  Receipt Date: 20230405
  Transmission Date: 20230722
  Serious: Yes (Other)
  Sender: FDA-Public Use
  Company Number: NL-LRB-00868067

PATIENT
  Sex: Female
  Weight: 60 kg

DRUGS (1)
  1. QUETIAPINE [Suspect]
     Active Substance: QUETIAPINE
     Indication: Sleep disorder
     Dosage: 1 DOSAGE FORM, ONCE A DAY (1DD)
     Route: 065
     Dates: start: 20220301

REACTIONS (3)
  - Angina pectoris [Recovering/Resolving]
  - Tachycardia [Recovering/Resolving]
  - Withdrawal syndrome [Recovering/Resolving]
